FAERS Safety Report 16972035 (Version 2)
Quarter: 2019Q4

REPORT INFORMATION
  Report Type: Spontaneous
  Country: US (occurrence: US)
  Receive Date: 20191029
  Receipt Date: 20191118
  Transmission Date: 20200122
  Serious: Yes (Death, Hospitalization)
  Sender: FDA-Public Use
  Company Number: US-TEVA-2019-US-1128885

PATIENT
  Age: 28 Year
  Sex: Male

DRUGS (2)
  1. DEPAKOTE [Concomitant]
     Active Substance: DIVALPROEX SODIUM
     Route: 065
  2. BUPROPION. [Suspect]
     Active Substance: BUPROPION
     Indication: INTENTIONAL OVERDOSE
     Dosage: EXTENDED RELEASE
     Route: 048

REACTIONS (9)
  - Suicide attempt [Unknown]
  - Electrocardiogram QT prolonged [Unknown]
  - Intentional overdose [Unknown]
  - Cardiac arrest [Fatal]
  - Status epilepticus [Fatal]
  - Lethargy [Unknown]
  - Bradycardia [Unknown]
  - Hypotension [Unknown]
  - Electrocardiogram QRS complex prolonged [Unknown]
